FAERS Safety Report 8790279 (Version 1)
Quarter: 2012Q4

REPORT INFORMATION
  Report Type: 
  Country: IT (occurrence: IT)
  Receive Date: 20120917
  Receipt Date: 20120917
  Transmission Date: 20130627
  Serious: Yes (Hospitalization)
  Sender: FDA-Public Use
  Company Number: IT-JNJFOC-20120904354

PATIENT
  Age: 48 Year
  Sex: Male

DRUGS (11)
  1. DARUNAVIR [Suspect]
     Indication: HIV INFECTION
     Route: 065
  2. RITONAVIR [Suspect]
     Indication: HIV INFECTION
     Route: 065
  3. TENOFOVIREMTRICITABINE [Suspect]
     Indication: HIV INFECTION
     Dosage: until JAN-2011
     Route: 065
     Dates: end: 201101
  4. ABACAVIR [Suspect]
     Indication: HIV INFECTION
     Dosage: until JAN-2011
     Route: 065
  5. LAMIVUDINE [Suspect]
     Indication: HIV INFECTION
     Dosage: until JAN-2011
     Route: 065
  6. ALENDRONIC ACID [Suspect]
     Indication: PRODUCT USED FOR UNKNOWN INDICATION
     Route: 048
  7. CHOLECALCIFEROL [Suspect]
     Indication: PRODUCT USED FOR UNKNOWN INDICATION
     Route: 048
  8. FENOFIBRATE [Suspect]
     Indication: PRODUCT USED FOR UNKNOWN INDICATION
     Route: 065
  9. VALPROIC ACID [Suspect]
     Indication: PRODUCT USED FOR UNKNOWN INDICATION
     Route: 065
  10. LEVETIRACETAM [Concomitant]
     Indication: PRODUCT USED FOR UNKNOWN INDICATION
     Route: 065
  11. ESCITALOPRAM [Concomitant]
     Indication: PRODUCT USED FOR UNKNOWN INDICATION
     Route: 065

REACTIONS (2)
  - Pancreatitis chronic [Unknown]
  - Pancreatic pseudocyst [Recovered/Resolved]
